FAERS Safety Report 5174205-9 (Version None)
Quarter: 2006Q4

REPORT INFORMATION
  Report Type: 
  Country: None (occurrence: None)
  Receive Date: 20061214
  Receipt Date: 20061205
  Transmission Date: 20070319
  Serious: Yes (Death)
  Sender: FDA-Public Use
  Company Number: CA-ROCHE-473726

PATIENT
  Age: 10 Year
  Sex: Male

DRUGS (6)
  1. ROCEPHIN [Suspect]
     Indication: DRUG USE FOR UNKNOWN INDICATION
     Dosage: FREQUENCY REPORTED AS FIRST DOSE.
     Route: 042
  2. PREDNISONE TAB [Concomitant]
  3. HYDROCORTISONE [Concomitant]
  4. PHENYTOIN SODIUM CAP [Concomitant]
     Route: 048
  5. METHOTREXATE [Concomitant]
     Route: 048
  6. AMLODIPINE [Concomitant]
     Route: 048

REACTIONS (8)
  - CIRCULATORY COLLAPSE [None]
  - DEATH [None]
  - DRUG SPECIFIC ANTIBODY PRESENT [None]
  - FEELING COLD [None]
  - HAEMOGLOBIN DECREASED [None]
  - HAEMOLYTIC ANAEMIA [None]
  - PALLOR [None]
  - TREMOR [None]
